FAERS Safety Report 12765495 (Version 1)
Quarter: 2016Q3

REPORT INFORMATION
  Report Type: Spontaneous
  Country: US (occurrence: US)
  Receive Date: 20160921
  Receipt Date: 20160921
  Transmission Date: 20161109
  Serious: Yes (Other)
  Sender: FDA-Public Use
  Company Number: US-BRISTOL-MYERS SQUIBB COMPANY-BMS-2016-074931

PATIENT
  Sex: Male

DRUGS (2)
  1. DASATINIB [Suspect]
     Active Substance: DASATINIB
     Indication: CHRONIC MYELOID LEUKAEMIA
     Dosage: 70 MG, QD
     Route: 065
     Dates: start: 2006
  2. DASATINIB [Suspect]
     Active Substance: DASATINIB
     Dosage: 35 MG, QD
     Route: 065
     Dates: end: 201103

REACTIONS (3)
  - Malignant neoplasm progression [Unknown]
  - Drug intolerance [Unknown]
  - Prescribed underdose [Unknown]
